FAERS Safety Report 18980266 (Version 4)
Quarter: 2024Q1

REPORT INFORMATION
  Report Type: Spontaneous
  Country: US (occurrence: US)
  Receive Date: 20210308
  Receipt Date: 20240227
  Transmission Date: 20240410
  Serious: No
  Sender: FDA-Public Use
  Company Number: US-HRARD-202000473

PATIENT
  Age: 65 Year
  Sex: Female

DRUGS (12)
  1. METOPIRONE [Suspect]
     Active Substance: METYRAPONE
     Indication: Cushing^s syndrome
     Route: 048
     Dates: start: 20191003
  2. METOPIRONE [Suspect]
     Active Substance: METYRAPONE
     Indication: Cushing^s syndrome
     Dosage: INTERRUPTION OF METOPIRONE FOR 4 WEEK SINCE EARLY FEB 2021
     Route: 048
     Dates: start: 20200310
  3. METOPIRONE [Suspect]
     Active Substance: METYRAPONE
     Indication: Cushing^s syndrome
     Dosage: 02 CAPSULES 03 TIMES A DAY
     Route: 048
     Dates: start: 20201003
  4. LASIX [Concomitant]
     Active Substance: FUROSEMIDE
     Indication: Product used for unknown indication
  5. GLIPIZIDE [Concomitant]
     Active Substance: GLIPIZIDE
     Indication: Product used for unknown indication
  6. LISINOPRIL [Concomitant]
     Active Substance: LISINOPRIL
     Indication: Product used for unknown indication
  7. LEVOTHYROXINE [Concomitant]
     Active Substance: LEVOTHYROXINE\LEVOTHYROXINE SODIUM
     Indication: Product used for unknown indication
  8. Amlodipine tab 10 mg [Concomitant]
     Indication: Product used for unknown indication
  9. Oxycodone cap 5 mg [Concomitant]
     Indication: Product used for unknown indication
     Dosage: UNK
     Route: 065
  10. Metoprol tar tab 25 mg [Concomitant]
     Indication: Product used for unknown indication
  11. REPATHA [Concomitant]
     Active Substance: EVOLOCUMAB
     Indication: Product used for unknown indication
  12. Lyrica cap 200 mg [Concomitant]
     Indication: Product used for unknown indication

REACTIONS (13)
  - Throat irritation [Not Recovered/Not Resolved]
  - Dyspepsia [Not Recovered/Not Resolved]
  - Pain in jaw [Unknown]
  - Arthralgia [Not Recovered/Not Resolved]
  - Malaise [Unknown]
  - Eating disorder [Unknown]
  - Stress [Unknown]
  - Mood altered [Unknown]
  - Fatigue [Unknown]
  - Nausea [Unknown]
  - Product dose omission issue [Unknown]
  - Dizziness [Not Recovered/Not Resolved]
  - Off label use [Not Recovered/Not Resolved]

NARRATIVE: CASE EVENT DATE: 20191003
